FAERS Safety Report 6175571-8 (Version None)
Quarter: 2009Q2

REPORT INFORMATION
  Report Type: 
  Country: None (occurrence: None)
  Receive Date: 20090501
  Receipt Date: 20090422
  Transmission Date: 20091009
  Serious: Yes (Other)
  Sender: FDA-Public Use
  Company Number: AT-JNJFOC-20090405294

PATIENT

DRUGS (4)
  1. PREZISTA [Suspect]
     Indication: DRUG USE FOR UNKNOWN INDICATION
     Route: 048
  2. INTELENCE [Suspect]
     Indication: DRUG USE FOR UNKNOWN INDICATION
     Route: 048
  3. ANTI-DIABETICS [Concomitant]
     Indication: DIABETES MELLITUS
     Route: 065
  4. SERUMLIPIDREDUCING AGENTS [Concomitant]
     Indication: LIPIDS INCREASED
     Route: 065

REACTIONS (1)
  - CONFUSIONAL STATE [None]
